FAERS Safety Report 8465218-X (Version None)
Quarter: 2012Q2

REPORT INFORMATION
  Report Type: 
  Country: None (occurrence: None)
  Receive Date: 20120626
  Receipt Date: 20120620
  Transmission Date: 20120825
  Serious: Yes (Hospitalization, Other)
  Sender: FDA-Public Use
  Company Number: PHEH2012US007044

PATIENT
  Sex: Male
  Weight: 129 kg

DRUGS (5)
  1. VITAMIN E [Concomitant]
  2. GLEEVEC [Suspect]
     Indication: DERMATOFIBROSARCOMA
     Dosage: 400 MG, QD
     Route: 048
     Dates: start: 20120330
  3. TRAMADOL HCL [Concomitant]
     Route: 048
  4. OXYGEN THERAPY [Concomitant]
  5. ANTIBIOTICS [Concomitant]

REACTIONS (6)
  - BODY MASS INDEX INCREASED [None]
  - EYE PRURITUS [None]
  - SKIN HAEMORRHAGE [None]
  - PNEUMONIA [None]
  - SKIN CHAPPED [None]
  - DRY SKIN [None]
